FAERS Safety Report 10007104 (Version 5)
Quarter: 2016Q1

REPORT INFORMATION
  Report Type: Spontaneous
  Country: US (occurrence: US)
  Receive Date: 20140313
  Receipt Date: 20160303
  Transmission Date: 20160525
  Serious: Yes (Hospitalization)
  Sender: FDA-Public Use
  Company Number: US-BAYER-2014-036390

PATIENT
  Age: 27 Year
  Sex: Female
  Weight: 65.76 kg

DRUGS (8)
  1. TORADOL [Concomitant]
     Active Substance: KETOROLAC TROMETHAMINE
  2. ALERTEC [Concomitant]
     Active Substance: MODAFINIL
     Dosage: UNK
     Dates: start: 20131224
  3. MIRENA [Suspect]
     Active Substance: LEVONORGESTREL
     Indication: CONTRACEPTION
     Dosage: 20 MCG/24HR, CONT
     Route: 015
     Dates: start: 20111216, end: 20140116
  4. DILAUDID [Concomitant]
     Active Substance: HYDROMORPHONE HYDROCHLORIDE
  5. MOTRIN [Concomitant]
     Active Substance: IBUPROFEN
  6. COLACE [Concomitant]
     Active Substance: DOCUSATE SODIUM
  7. ZOFRAN [Concomitant]
     Active Substance: ONDANSETRON HYDROCHLORIDE
  8. NORCO [Concomitant]
     Active Substance: ACETAMINOPHEN\HYDROCODONE BITARTRATE

REACTIONS (5)
  - Uterine perforation [Not Recovered/Not Resolved]
  - Abdominal pain [Not Recovered/Not Resolved]
  - Device defective [None]
  - Dyspareunia [Not Recovered/Not Resolved]
  - Medical device discomfort [Not Recovered/Not Resolved]

NARRATIVE: CASE EVENT DATE: 201312
